FAERS Safety Report 4294589-3 (Version None)
Quarter: 2004Q1

REPORT INFORMATION
  Report Type: 
  Country: None (occurrence: None)
  Receive Date: 20040213
  Receipt Date: 20040202
  Transmission Date: 20041129
  Serious: Yes (Other)
  Sender: FDA-Public Use
  Company Number: WAES 0402GBR00024

PATIENT
  Age: 82 Year
  Sex: Female

DRUGS (4)
  1. FOLIC ACID [Concomitant]
     Route: 048
  2. REBOXETINE [Concomitant]
     Route: 048
  3. VIOXX [Suspect]
     Indication: ARTHRALGIA
     Route: 048
     Dates: start: 20040112, end: 20040119
  4. VITAMIN D (UNSPECIFIED) [Concomitant]
     Route: 048

REACTIONS (2)
  - ABDOMINAL PAIN [None]
  - HAEMATEMESIS [None]
